FAERS Safety Report 9836729 (Version 1)
Quarter: 2014Q1

REPORT INFORMATION
  Report Type: Spontaneous
  Country: CH (occurrence: CH)
  Receive Date: 20140123
  Receipt Date: 20140123
  Transmission Date: 20141002
  Serious: Yes (Hospitalization)
  Sender: FDA-Public Use
  Company Number: PHHY2014CH005662

PATIENT
  Age: 2 Year
  Sex: 0

DRUGS (1)
  1. CO-AMOXICILLIN SANDOZ [Suspect]
     Dosage: 3.5 ML, TID

REACTIONS (2)
  - Drug dispensing error [Unknown]
  - Overdose [Unknown]
